FAERS Safety Report 5320873-8 (Version None)
Quarter: 2007Q2

REPORT INFORMATION
  Report Type: 
  Country: None (occurrence: None)
  Receive Date: 20070504
  Receipt Date: 20070423
  Transmission Date: 20071010
  Serious: Yes (Hospitalization, Disabling, Other)
  Sender: FDA-Public Use
  Company Number: US019214

PATIENT
  Age: 79 Year
  Sex: Male

DRUGS (9)
  1. TRISENOX [Suspect]
     Indication: ACUTE PROMYELOCYTIC LEUKAEMIA
     Dosage: 8.0625 MG DAILY
     Dates: start: 20061220, end: 20061231
  2. TRISENOX [Suspect]
     Indication: ACUTE PROMYELOCYTIC LEUKAEMIA
     Dosage: 8.0625 MG DAILY
     Dates: start: 20070102, end: 20070116
  3. TRISENOX [Suspect]
     Indication: ACUTE PROMYELOCYTIC LEUKAEMIA
     Dosage: 8.0625 MG DAILY
     Dates: start: 20070118, end: 20070202
  4. TRISENOX [Suspect]
     Indication: ACUTE PROMYELOCYTIC LEUKAEMIA
     Dosage: 8.0625MG DAILY
     Dates: start: 20070206, end: 20070213
  5. DISOPYRAMIDE PHOSPHATE [Suspect]
     Indication: ARRHYTHMIA
     Dosage: 300 MG QD ORAL
     Route: 048
  6. MEXILETINE HYDROCHLORIDE [Concomitant]
  7. NIFEDIPINE [Concomitant]
  8. HALOXAZOLAM [Concomitant]
  9. ZOLPIDEM TARTRATE [Concomitant]

REACTIONS (8)
  - ALANINE AMINOTRANSFERASE INCREASED [None]
  - ASPARTATE AMINOTRANSFERASE INCREASED [None]
  - ELECTROCARDIOGRAM QT PROLONGED [None]
  - FACIAL PALSY [None]
  - FEBRILE NEUTROPENIA [None]
  - HERPES ZOSTER [None]
  - LIVER DISORDER [None]
  - RASH [None]
